FAERS Safety Report 14993206 (Version 7)
Quarter: 2019Q4

REPORT INFORMATION
  Report Type: Report from Study
  Country: US (occurrence: US)
  Receive Date: 20180610
  Receipt Date: 20191126
  Transmission Date: 20200122
  Serious: Yes (Other)
  Sender: FDA-Public Use
  Company Number: US-INCYTE CORPORATION-2018IN004995

PATIENT

DRUGS (20)
  1. JAKAFI [Interacting]
     Active Substance: RUXOLITINIB
     Dosage: 10 MG QAM, 5 MG QPM (HALF OF A 10 MG TABLET)
     Route: 048
  2. JAKAFI [Interacting]
     Active Substance: RUXOLITINIB
     Dosage: 10 MG (1/2 TABLET), BID
     Route: 048
     Dates: start: 20180520
  3. JAKAFI [Interacting]
     Active Substance: RUXOLITINIB
     Dosage: 10 MG IN THE MORNING AND 5 MG IN THE EVENING (BY CUTTING A 10MG TABLET)
     Route: 048
  4. ASPIRIN                            /00002701/ [Concomitant]
     Active Substance: ASPIRIN
     Indication: PRODUCT USED FOR UNKNOWN INDICATION
     Dosage: UNK
     Route: 065
  5. JAKAFI [Interacting]
     Active Substance: RUXOLITINIB
     Dosage: 10MG SPLIT TO OBTAIN 5 MG, BID
     Route: 048
     Dates: start: 20180527
  6. JAKAFI [Interacting]
     Active Substance: RUXOLITINIB
     Dosage: 5 MG (10 MG / 2)
     Route: 048
  7. JAKAFI [Interacting]
     Active Substance: RUXOLITINIB
     Dosage: 10 MG AM AND 1/2 TABLET OF 10 MG PM
     Route: 048
  8. CO Q 10                            /00517201/ [Concomitant]
     Indication: PRODUCT USED FOR UNKNOWN INDICATION
     Dosage: UNK
     Route: 065
  9. ALBUTEROL                          /00139501/ [Concomitant]
     Active Substance: ALBUTEROL
     Indication: PRODUCT USED FOR UNKNOWN INDICATION
     Dosage: PRN
     Route: 065
  10. DOXYLAMINE SUCCINATE. [Concomitant]
     Active Substance: DOXYLAMINE SUCCINATE
     Indication: PRODUCT USED FOR UNKNOWN INDICATION
     Dosage: UNK
     Route: 065
  11. THIAMINE. [Concomitant]
     Active Substance: THIAMINE
     Indication: PRODUCT USED FOR UNKNOWN INDICATION
     Dosage: UNK
     Route: 065
  12. LISINOPRIL. [Concomitant]
     Active Substance: LISINOPRIL
     Indication: PRODUCT USED FOR UNKNOWN INDICATION
     Dosage: UNK
     Route: 065
  13. TYLENOL PM [Concomitant]
     Active Substance: ACETAMINOPHEN\DIPHENHYDRAMINE
     Indication: PRODUCT USED FOR UNKNOWN INDICATION
     Dosage: UNK
     Route: 065
  14. JAKAFI [Suspect]
     Active Substance: RUXOLITINIB
     Indication: MYELOFIBROSIS
     Dosage: 5 MG, BID
     Route: 048
     Dates: start: 20180520
  15. JAKAFI [Interacting]
     Active Substance: RUXOLITINIB
     Dosage: 10 MG (1/2 TAB) = 5MG, BID
     Route: 048
     Dates: start: 20190520
  16. VITAMINS [Concomitant]
     Active Substance: VITAMINS
     Indication: PRODUCT USED FOR UNKNOWN INDICATION
     Dosage: UNK
     Route: 065
  17. PEGASYS [Interacting]
     Active Substance: PEGINTERFERON ALFA-2A
     Indication: MYELOFIBROSIS
     Dosage: UNK
     Route: 065
     Dates: start: 2015
  18. AMLODIPINE [Concomitant]
     Active Substance: AMLODIPINE BESYLATE
     Indication: PRODUCT USED FOR UNKNOWN INDICATION
     Dosage: UNK
     Route: 065
  19. JAKAFI [Interacting]
     Active Substance: RUXOLITINIB
     Dosage: 10 MG QAM, 5 MG QPM (HALF OF A 10 MG TABLET)
     Route: 048
  20. PROPRANOLOL [Concomitant]
     Active Substance: PROPRANOLOL HYDROCHLORIDE
     Indication: PRODUCT USED FOR UNKNOWN INDICATION
     Dosage: UNK
     Route: 065

REACTIONS (11)
  - Incorrect dose administered [Unknown]
  - Myelofibrosis [Unknown]
  - Haemoglobin decreased [Not Recovered/Not Resolved]
  - Poor quality sleep [Unknown]
  - Wrong technique in product usage process [Unknown]
  - Anaemia [Not Recovered/Not Resolved]
  - Productive cough [Not Recovered/Not Resolved]
  - Gout [Recovered/Resolved]
  - Fatigue [Not Recovered/Not Resolved]
  - Visual impairment [Unknown]
  - Drug interaction [Unknown]

NARRATIVE: CASE EVENT DATE: 20180520
